FAERS Safety Report 8079688-2 (Version None)
Quarter: 2012Q1

REPORT INFORMATION
  Report Type: 
  Country: None (occurrence: None)
  Receive Date: 20120128
  Receipt Date: 20110720
  Transmission Date: 20120608
  Serious: No
  Sender: FDA-Public Use
  Company Number: US-ABBOTT-11P-163-0840979-00

PATIENT
  Sex: Female
  Weight: 55.842 kg

DRUGS (5)
  1. NEURONTIN [Concomitant]
     Indication: ANKYLOSING SPONDYLITIS
  2. HUMIRA [Suspect]
     Route: 058
     Dates: start: 20110501
  3. HUMIRA [Suspect]
     Route: 058
     Dates: start: 20110401, end: 20110501
  4. HUMIRA [Suspect]
     Indication: ANKYLOSING SPONDYLITIS
     Route: 058
     Dates: start: 20090101, end: 20110401
  5. TRAMADOL HCL [Concomitant]
     Indication: ANKYLOSING SPONDYLITIS

REACTIONS (2)
  - PAIN [None]
  - DRUG INEFFECTIVE [None]
